FAERS Safety Report 11078449 (Version 2)
Quarter: 2015Q2

REPORT INFORMATION
  Report Type: Spontaneous
  Country: TH (occurrence: None)
  Receive Date: 20150428
  Receipt Date: 20150507
  Transmission Date: 20150821
  Serious: Yes (Hospitalization)
  Sender: FDA-Public Use
  Company Number: FK201501909

PATIENT
  Age: 25 Year
  Sex: Female

DRUGS (5)
  1. CISPLATIN (MANUFACTURER UNKNOWN) (CISPLATIN) (CISPLATIN) [Suspect]
     Active Substance: CISPLATIN
     Indication: OVARIAN GERM CELL CANCER
     Dates: start: 201402, end: 201403
  2. DEXAMETHASONE (DEXAMETHASONE) [Concomitant]
     Active Substance: DEXAMETHASONE
  3. ONDANSETRON. [Concomitant]
     Active Substance: ONDANSETRON
     Indication: OVARIAN GERM CELL CANCER
  4. BLEOMYCIN [Suspect]
     Active Substance: BLEOMYCIN SULFATE
     Indication: OVARIAN GERM CELL CANCER
     Dates: start: 201402, end: 201403
  5. ETOPOSIDE (MANUFACTURER UNKNOWN) (ETOPOSIDE) (ETOPOSIDE) [Suspect]
     Active Substance: ETOPOSIDE
     Indication: OVARIAN GERM CELL CANCER
     Dates: start: 201402, end: 201403

REACTIONS (6)
  - Irritability [None]
  - Psychomotor hyperactivity [None]
  - Memory impairment [None]
  - Mood altered [None]
  - Acute psychosis [None]
  - Sleep disorder [None]
